FAERS Safety Report 24593678 (Version 1)
Quarter: 2024Q4

REPORT INFORMATION
  Report Type: Spontaneous
  Country: CN (occurrence: CN)
  Receive Date: 20241108
  Receipt Date: 20241108
  Transmission Date: 20250115
  Serious: Yes (Hospitalization, Other)
  Sender: BAXTER
  Company Number: None

PATIENT
  Age: 62 Year
  Sex: Female
  Weight: 64.5 kg

DRUGS (12)
  1. CYCLOPHOSPHAMIDE [Suspect]
     Active Substance: CYCLOPHOSPHAMIDE
     Indication: Chemotherapy
     Dosage: 0.8 G, ONE TIME IN ONE DAY, DILUTED WITH 100 ML OF 0.9% SODIUM CHLORIDE
     Route: 065
     Dates: start: 20241012, end: 20241012
  2. CYCLOPHOSPHAMIDE [Suspect]
     Active Substance: CYCLOPHOSPHAMIDE
     Indication: Breast neoplasm
     Dosage: 0.800000 G ONCE DAILY
     Route: 041
     Dates: start: 20241018, end: 20241018
  3. SODIUM CHLORIDE [Suspect]
     Active Substance: SODIUM CHLORIDE
     Indication: Medication dilution
     Dosage: (0.9%) 250 ML, ONE TIME IN ONE DAY, USED TO DILUTE 120 MG OF DOCETAXEL INJECTION
     Route: 041
     Dates: start: 20241012, end: 20241012
  4. SODIUM CHLORIDE [Suspect]
     Active Substance: SODIUM CHLORIDE
     Dosage: (0.9%) 100 ML, ONE TIME IN ONE DAY, USED TO DILUTE 0.8 G OF CYCLOPHOSPHAMIDE
     Route: 065
     Dates: start: 20241012, end: 20241012
  5. SODIUM CHLORIDE [Suspect]
     Active Substance: SODIUM CHLORIDE
     Dosage: (0.9%) 100 ML, ONE TIME IN ONE DAY, USED TO DILUTE 1.5 G OF CEFOPERAZONE SULBACTAM SODIUM
     Route: 041
  6. DEXTROSE [Suspect]
     Active Substance: DEXTROSE MONOHYDRATE
     Indication: Medication dilution
     Dosage: (5%) 100 ML, ONE TIME IN ONE DAY, USED TO DILUTE 80 MG OF EPIRUBICIN HYDROCHLORIDE
     Route: 041
     Dates: start: 20241012, end: 20241012
  7. DOCETAXEL [Suspect]
     Active Substance: DOCETAXEL
     Indication: Chemotherapy
     Dosage: 120 MG
     Route: 065
     Dates: start: 20241011
  8. DOCETAXEL [Suspect]
     Active Substance: DOCETAXEL
     Indication: Breast neoplasm
     Dosage: 120 MG, ONE TIME IN ONE DAY, DILUTED WITH 250 ML OF 0.9% SODIUM CHLORIDE
     Route: 041
     Dates: start: 20241012, end: 20241012
  9. EPIRUBICIN HYDROCHLORIDE [Suspect]
     Active Substance: EPIRUBICIN HYDROCHLORIDE
     Indication: Chemotherapy
     Dosage: 80 MG, ONE TIME IN ONE DAY, DILUTED WITH 100 ML OF 5 % GLUCOSE
     Route: 041
     Dates: start: 20241012
  10. EPIRUBICIN HYDROCHLORIDE [Suspect]
     Active Substance: EPIRUBICIN HYDROCHLORIDE
     Indication: Breast neoplasm
     Dosage: 80.000000 MG, ONCE DAILY
     Route: 041
     Dates: start: 20241018, end: 20241018
  11. DOXORUBICIN [Suspect]
     Active Substance: DOXORUBICIN
     Indication: Chemotherapy
     Dosage: 80 MG
     Route: 065
     Dates: start: 20241011
  12. DOXORUBICIN [Suspect]
     Active Substance: DOXORUBICIN
     Indication: Breast neoplasm

REACTIONS (7)
  - Myelosuppression [Recovering/Resolving]
  - White blood cell count decreased [Recovering/Resolving]
  - Neutrophil count decreased [Recovering/Resolving]
  - Platelet count decreased [Recovering/Resolving]
  - Hypokalaemia [Recovering/Resolving]
  - Pyrexia [Recovering/Resolving]
  - Asthenia [Recovering/Resolving]

NARRATIVE: CASE EVENT DATE: 20241018
